FAERS Safety Report 20554961 (Version 2)
Quarter: 2022Q1

REPORT INFORMATION
  Report Type: Spontaneous
  Country: KR (occurrence: KR)
  Receive Date: 20220304
  Receipt Date: 20220316
  Transmission Date: 20220424
  Serious: Yes (Death, Life-Threatening)
  Sender: FDA-Public Use
  Company Number: KR-PFIZER INC-202200354972

PATIENT
  Sex: Female

DRUGS (1)
  1. VYNDAMAX [Suspect]
     Active Substance: TAFAMIDIS
     Dosage: 61 MG, 1X/DAY
     Route: 048

REACTIONS (1)
  - Death [Fatal]
